FAERS Safety Report 9993080 (Version 1)
Quarter: 2014Q1

REPORT INFORMATION
  Report Type: Report from Study
  Country: US (occurrence: US)
  Receive Date: 20140310
  Receipt Date: 20140310
  Transmission Date: 20141002
  Serious: Yes (Hospitalization)
  Sender: FDA-Public Use
  Company Number: US-ACTELION-A-US2014-95631

PATIENT
  Age: 5 Year
  Sex: Female

DRUGS (2)
  1. TRACLEER [Suspect]
     Indication: CONGENITAL ANOMALY
     Dosage: UNK
     Route: 048
  2. SILDENAFIL [Concomitant]

REACTIONS (1)
  - Cardiac operation [Unknown]
